FAERS Safety Report 15084180 (Version 1)
Quarter: 2018Q2

REPORT INFORMATION
  Report Type: Report from Study
  Country: MX (occurrence: MX)
  Receive Date: 20180628
  Receipt Date: 20180628
  Transmission Date: 20180711
  Serious: Yes (Life-Threatening, Other)
  Sender: FDA-Public Use
  Company Number: PHHY2018MX031471

PATIENT
  Age: 42 Year
  Sex: Female

DRUGS (6)
  1. TRILEPTAL [Suspect]
     Active Substance: OXCARBAZEPINE
     Indication: EPILEPSY
     Dosage: 40 ML (60 MG/ML), (10 ML IN MORNING, 10 ML IN NOON, 20 ML AT NIGHT)
     Route: 048
     Dates: start: 1986
  2. TEGRETOL [Suspect]
     Active Substance: CARBAMAZEPINE
     Indication: EPILEPSY
     Dosage: 1.5 DF (400 MG), 0.5 DF IN MORNING, 1 AT NIGHT
     Route: 048
     Dates: start: 1986, end: 2016
  3. RIVOTRIL [Concomitant]
     Active Substance: CLONAZEPAM
     Indication: SLEEP DISORDER
     Dosage: UNK, QHS
     Route: 065
     Dates: start: 20171020
  4. PAXIL [Suspect]
     Active Substance: PAROXETINE HYDROCHLORIDE
     Indication: DEPRESSION
     Dosage: UNK
     Route: 065
     Dates: start: 20130112
  5. ACTINIUM [Concomitant]
     Indication: EPILEPSY
     Dosage: 2 DF (0.5 DF IN MORNING, 0.5 DF IN  NOON AND 1 AT NIGHT)
     Route: 065
     Dates: start: 20180505
  6. RIVOTRIL [Concomitant]
     Active Substance: CLONAZEPAM
     Indication: SLEEP DISORDER
     Dosage: 5 DRP, QHS
     Route: 065
     Dates: start: 19890620

REACTIONS (12)
  - Depression [Not Recovered/Not Resolved]
  - Visual impairment [Unknown]
  - Wrong technique in product usage process [Unknown]
  - Epilepsy [Not Recovered/Not Resolved]
  - Blindness [Not Recovered/Not Resolved]
  - Mood altered [Unknown]
  - Ill-defined disorder [Not Recovered/Not Resolved]
  - Feeling of despair [Unknown]
  - Feeling abnormal [Unknown]
  - Overweight [Not Recovered/Not Resolved]
  - Dizziness [Not Recovered/Not Resolved]
  - Headache [Unknown]

NARRATIVE: CASE EVENT DATE: 20130112
